FAERS Safety Report 15609835 (Version 1)
Quarter: 2018Q4

REPORT INFORMATION
  Report Type: Other
  Country: ES (occurrence: ES)
  Receive Date: 20181113
  Receipt Date: 20181113
  Transmission Date: 20190205
  Serious: Yes (Death)
  Sender: FDA-Public Use
  Company Number: ES-CELLTRION INC.-2018ES023625

PATIENT

DRUGS (2)
  1. REMSIMA [Suspect]
     Active Substance: INFLIXIMAB
     Indication: POLYARTHRITIS
     Dosage: UNK
     Route: 042
     Dates: start: 20170418, end: 20170418
  2. REMSIMA [Suspect]
     Active Substance: INFLIXIMAB
     Dosage: UNK
     Route: 042
     Dates: start: 20171010, end: 20171010

REACTIONS (1)
  - Adenocarcinoma pancreas [Fatal]

NARRATIVE: CASE EVENT DATE: 20171010
